FAERS Safety Report 7910571 (Version 2)
Quarter: 2014Q1

REPORT INFORMATION
  Report Type: Spontaneous
  Country: CA (occurrence: CA)
  Receive Date: 20110422
  Receipt Date: 20140124
  Transmission Date: 20141002
  Serious: Yes (Death, Life-Threatening, Hospitalization, Other)
  Sender: FDA-Public Use
  Company Number: CA-JNJFOC-20110404512

PATIENT
  Age: 63 Year
  Sex: Female
  Weight: 66 kg

DRUGS (12)
  1. REMICADE [Suspect]
     Indication: RHEUMATOID ARTHRITIS
     Route: 042
     Dates: start: 20050527
  2. REMICADE [Suspect]
     Indication: RHEUMATOID ARTHRITIS
     Route: 042
     Dates: start: 20101221, end: 20101221
  3. BRICANYL [Concomitant]
     Route: 048
  4. PULMICORT [Concomitant]
     Dosage: 2 PUFFS BID
  5. TAZOCIN [Concomitant]
  6. ZANTAC [Concomitant]
  7. MORPHINE [Concomitant]
  8. OXYCOCET [Concomitant]
  9. DICLOFENAC [Concomitant]
  10. ARAVA [Concomitant]
     Route: 048
  11. IMOVANE [Concomitant]
     Route: 048
  12. ELTROXIN [Concomitant]
     Route: 048

REACTIONS (4)
  - Death [Fatal]
  - Acute respiratory distress syndrome [Unknown]
  - Retroperitoneal abscess [Unknown]
  - Abdominal sepsis [Unknown]
